FAERS Safety Report 17290477 (Version 2)
Quarter: 2020Q1

REPORT INFORMATION
  Report Type: Report from Study
  Country: AT (occurrence: AT)
  Receive Date: 20200121
  Receipt Date: 20200309
  Transmission Date: 20200409
  Serious: Yes (Hospitalization)
  Sender: FDA-Public Use
  Company Number: AT-ROCHE-2518850

PATIENT
  Age: 57 Year
  Sex: Female
  Weight: 86 kg

DRUGS (24)
  1. PASSEDAN [Concomitant]
     Dosage: ONGOING = CHECKED
     Route: 065
     Dates: start: 20191010
  2. NOVALGIN (METAMIZOLE SODIUM) [Concomitant]
     Active Substance: METAMIZOLE SODIUM
     Dosage: ONGOING = CHECKED
     Route: 065
     Dates: start: 20191015
  3. PASPERTIN [METOCLOPRAMIDE HYDROCHLORIDE] [Concomitant]
     Active Substance: METOCLOPRAMIDE HYDROCHLORIDE
     Dosage: ONGOING = CHECKED
     Route: 065
     Dates: start: 20191015
  4. KYTRIL [Concomitant]
     Active Substance: GRANISETRON HYDROCHLORIDE
     Dosage: ONGOING = CHECKED
     Route: 065
     Dates: start: 20191014
  5. VITAMINS WITH MINERALS [Concomitant]
     Active Substance: MINERALS\VITAMINS
     Dosage: ONGOING = CHECKED
     Route: 065
  6. SPIOLTO RESPIMAT [Concomitant]
     Active Substance: OLODATEROL HYDROCHLORIDE\TIOTROPIUM BROMIDE MONOHYDRATE
     Dosage: ONGOING = CHECKED
     Route: 065
  7. ALVESCO [Concomitant]
     Active Substance: CICLESONIDE
     Dosage: ONGOING = CHECKED
     Route: 065
  8. CONCOR [Concomitant]
     Active Substance: BISOPROLOL FUMARATE
     Dosage: ONGOING = CHECKED
     Route: 065
  9. PERTUZUMAB. [Suspect]
     Active Substance: PERTUZUMAB
     Indication: BREAST CANCER
     Dosage: MOST RECENT DOSE PRIOR TO THE EVENT: 06/NOV/2019
     Route: 042
     Dates: start: 20191014
  10. PANTOLOC [PANTOPRAZOLE] [Concomitant]
     Active Substance: PANTOPRAZOLE SODIUM
     Dosage: ONGOING = CHECKED
     Route: 065
  11. APREDNISLON [Concomitant]
     Active Substance: PREDNISOLONE
     Dosage: ONGOING = CHECKED
     Route: 065
  12. DILTIAZEM. [Concomitant]
     Active Substance: DILTIAZEM
     Dosage: ONGOING = CHECKED
     Route: 065
  13. TRITTICO [Concomitant]
     Active Substance: TRAZODONE HYDROCHLORIDE
     Dosage: ONGOING = CHECKED
     Route: 065
  14. ACEMIN [LISINOPRIL] [Concomitant]
     Active Substance: LISINOPRIL
     Dosage: ONGOING = CHECKED
     Route: 065
  15. MOLAXOLE [Concomitant]
     Active Substance: POLYETHYLENE GLYCOL 3350\POTASSIUM CHLORIDE\SODIUM BICARBONATE\SODIUM CHLORIDE
     Dosage: ONGOING = CHECKED
     Route: 065
     Dates: start: 20191015
  16. DAXAS [Concomitant]
     Active Substance: ROFLUMILAST
     Dosage: ONGOING = CHECKED
     Route: 065
  17. SIMVASTATIN. [Concomitant]
     Active Substance: SIMVASTATIN
     Dosage: ONGOING = CHECKED
     Route: 065
  18. DEXAMETHASON [DEXAMETHASONE] [Concomitant]
     Active Substance: DEXAMETHASONE
     Dosage: ONGOING = CHECKED
     Route: 065
     Dates: start: 20191021
  19. ULSAL [Concomitant]
     Active Substance: RANITIDINE HYDROCHLORIDE
     Dosage: ONGOING = CHECKED
     Route: 065
     Dates: start: 20191014
  20. FENISTIL [Concomitant]
     Active Substance: DIMETHINDENE
     Dosage: ONGOING = CHECKED
     Route: 065
     Dates: start: 20191014
  21. EFECTIN [Concomitant]
     Active Substance: VENLAFAXINE HYDROCHLORIDE
     Dosage: ONGOING = CHECKED
     Route: 065
  22. BEROTEC [Concomitant]
     Active Substance: FENOTEROL HYDROBROMIDE
     Dosage: ONGOING = CHECKED
     Route: 065
  23. ENTEROBENE [Concomitant]
     Indication: DIARRHOEA
     Dosage: ONGOING = CHECKED
     Route: 065
     Dates: start: 20191015
  24. MOLAXOLE [Concomitant]
     Active Substance: POLYETHYLENE GLYCOL 3350\POTASSIUM CHLORIDE\SODIUM BICARBONATE\SODIUM CHLORIDE
     Dosage: ONGOING = CHECKED
     Route: 065
     Dates: start: 20191015

REACTIONS (1)
  - C-reactive protein increased [Recovered/Resolved]

NARRATIVE: CASE EVENT DATE: 20191212
